FAERS Safety Report 16898594 (Version 1)
Quarter: 2019Q4

REPORT INFORMATION
  Report Type: Report from Study
  Country: US (occurrence: US)
  Receive Date: 20191009
  Receipt Date: 20191009
  Transmission Date: 20200122
  Serious: Yes (Other)
  Sender: FDA-Public Use
  Company Number: US-TEVA-2019-US-1119114

PATIENT
  Sex: Female

DRUGS (3)
  1. AUSTEDO [Suspect]
     Active Substance: DEUTETRABENAZINE
     Indication: TARDIVE DYSKINESIA
     Route: 048
     Dates: start: 20190712
  2. AUSTEDO [Suspect]
     Active Substance: DEUTETRABENAZINE
     Route: 048
     Dates: end: 20190918
  3. AUSTEDO [Suspect]
     Active Substance: DEUTETRABENAZINE
     Dosage: WAS ON 6 MG AND 9 MG TABLETS TWICE A DAY
     Route: 048

REACTIONS (4)
  - Malaise [Recovering/Resolving]
  - Mental impairment [Recovering/Resolving]
  - Condition aggravated [Recovering/Resolving]
  - Suicidal ideation [Recovering/Resolving]
